FAERS Safety Report 7999851-6 (Version None)
Quarter: 2011Q4

REPORT INFORMATION
  Report Type: 
  Country: None (occurrence: None)
  Receive Date: 20111222
  Receipt Date: 20111215
  Transmission Date: 20120403
  Serious: No
  Sender: FDA-Public Use
  Company Number: US-BIOGENIDEC-2011BI036161

PATIENT
  Sex: Female

DRUGS (3)
  1. TYSABRI [Suspect]
     Route: 042
     Dates: end: 20050201
  2. TYSABRI [Suspect]
     Route: 042
     Dates: start: 20111101
  3. TYSABRI [Suspect]
     Indication: MULTIPLE SCLEROSIS
     Route: 042
     Dates: start: 20070227, end: 20080402

REACTIONS (5)
  - CENTRAL NERVOUS SYSTEM LESION [None]
  - POOR VENOUS ACCESS [None]
  - DRUG INEFFECTIVE [None]
  - BACK PAIN [None]
  - MULTIPLE SCLEROSIS RELAPSE [None]
